FAERS Safety Report 13521478 (Version 3)
Quarter: 2017Q4

REPORT INFORMATION
  Report Type: Report from Study
  Country: CA (occurrence: CA)
  Receive Date: 20170508
  Receipt Date: 20171116
  Transmission Date: 20180320
  Serious: Yes (Hospitalization, Other)
  Sender: FDA-Public Use
  Company Number: CA-ROCHE-1930567

PATIENT
  Age: 59 Year
  Sex: Female

DRUGS (8)
  1. HERCEPTIN [Suspect]
     Active Substance: TRASTUZUMAB
     Indication: HER-2 POSITIVE BREAST CANCER
     Route: 042
     Dates: start: 2006, end: 201405
  2. LAPATINIB [Concomitant]
     Active Substance: LAPATINIB
  3. TAMAXIN [Concomitant]
  4. AZITHROMYCIN ANHYDROUS. [Concomitant]
     Active Substance: AZITHROMYCIN ANHYDROUS
  5. CEFADROXIL. [Concomitant]
     Active Substance: CEFADROXIL
  6. KADCYLA [Suspect]
     Active Substance: ADO-TRASTUZUMAB EMTANSINE
     Indication: HER-2 POSITIVE BREAST CANCER
     Route: 042
     Dates: start: 20170503
  7. CLOXACILLIN [Concomitant]
     Active Substance: CLOXACILLIN
  8. HYDROMORPHONE [Concomitant]
     Active Substance: HYDROMORPHONE

REACTIONS (10)
  - Haemoptysis [Unknown]
  - Device related infection [Not Recovered/Not Resolved]
  - Chest X-ray abnormal [Unknown]
  - Paraesthesia [Not Recovered/Not Resolved]
  - Lung consolidation [Not Recovered/Not Resolved]
  - Spinal cord infection [Not Recovered/Not Resolved]
  - Cough [Unknown]
  - Nasopharyngitis [Unknown]
  - Haemoptysis [Not Recovered/Not Resolved]
  - Constipation [Unknown]

NARRATIVE: CASE EVENT DATE: 201608
